FAERS Safety Report 5452086-3 (Version None)
Quarter: 2007Q3

REPORT INFORMATION
  Report Type: 
  Country: None (occurrence: None)
  Receive Date: 20070803
  Receipt Date: 20070426
  Transmission Date: 20080115
  Serious: Yes (Hospitalization)
  Sender: FDA-Public Use
  Company Number: SPV1-2007-02328

PATIENT
  Age: 9 Year
  Sex: Male

DRUGS (4)
  1. DAYTRANA [Suspect]
     Indication: ATTENTION DEFICIT/HYPERACTIVITY DISORDER
     Dosage: 10MG, TRANSDERMAL;10MG, TRANSDERMAL
     Route: 062
     Dates: start: 20070101, end: 20070101
  2. DAYTRANA [Suspect]
     Indication: ATTENTION DEFICIT/HYPERACTIVITY DISORDER
     Dosage: 10MG, TRANSDERMAL;10MG, TRANSDERMAL
     Route: 062
     Dates: start: 20070424
  3. ZYRTEC [Concomitant]
  4. SINGULAIR [Concomitant]

REACTIONS (3)
  - ANOREXIA [None]
  - PHARMACEUTICAL PRODUCT COMPLAINT [None]
  - VIRAL INFECTION [None]
